FAERS Safety Report 4283182-4 (Version None)
Quarter: 2004Q1

REPORT INFORMATION
  Report Type: 
  Country: None (occurrence: None)
  Receive Date: 20040122
  Receipt Date: 20040115
  Transmission Date: 20041129
  Serious: Yes (Hospitalization)
  Sender: FDA-Public Use
  Company Number: 2004-00134

PATIENT
  Age: 70 Year
  Sex: Male

DRUGS (1)
  1. IMMUCYST (BCG - IT (CONNAUGHT)), AVENTIS PASTEUR LTD., LOT NOT REP, I4 [Suspect]
     Indication: BLADDER CANCER
     Dosage: B. IN., BLADDER
     Dates: start: 20000710

REACTIONS (1)
  - DISSEMINATED TUBERCULOSIS [None]
